FAERS Safety Report 4454833-6 (Version None)
Quarter: 2004Q3

REPORT INFORMATION
  Report Type: 
  Country: None (occurrence: None)
  Receive Date: 20040921
  Receipt Date: 20040827
  Transmission Date: 20050211
  Serious: Yes (Other)
  Sender: FDA-Public Use
  Company Number: US-GLAXOSMITHKLINE-A0524724B

PATIENT
  Sex: Male
  Weight: 3.2 kg

DRUGS (7)
  1. LAMOTRIGINE [Suspect]
     Indication: DRUG EXPOSURE DURING PREGNANCY
     Dosage: 300MG PER DAY
  2. LEXAPRO [Concomitant]
     Indication: DRUG EXPOSURE DURING PREGNANCY
     Dosage: 60MG PER DAY
     Route: 061
  3. AMBIEN [Concomitant]
     Indication: DRUG EXPOSURE DURING PREGNANCY
     Dosage: 10MG PER DAY
     Route: 061
  4. FIORICET [Concomitant]
     Indication: DRUG EXPOSURE DURING PREGNANCY
     Route: 061
  5. CLONOPIN [Concomitant]
     Indication: DRUG EXPOSURE DURING PREGNANCY
     Dosage: 1MG PER DAY
  6. PAIN MEDICATION [Concomitant]
     Indication: DRUG EXPOSURE DURING PREGNANCY
     Route: 061
  7. MAGNESIUM [Concomitant]
     Indication: DRUG EXPOSURE DURING PREGNANCY
     Route: 061

REACTIONS (12)
  - ASTHENIA [None]
  - DRUG EXPOSURE DURING PREGNANCY [None]
  - DYSPNOEA [None]
  - FALL [None]
  - FOOD INTOLERANCE [None]
  - ILL-DEFINED DISORDER [None]
  - LACTOSE INTOLERANCE [None]
  - NEONATAL DISORDER [None]
  - PILONIDAL CYST CONGENITAL [None]
  - PLACENTA PRAEVIA [None]
  - SPINA BIFIDA OCCULTA [None]
  - TALIPES [None]
